FAERS Safety Report 8888090 (Version 2)
Quarter: 2012Q4

REPORT INFORMATION
  Report Type: 
  Country: US (occurrence: US)
  Receive Date: 20121106
  Receipt Date: 20121213
  Transmission Date: 20130627
  Serious: Yes (Hospitalization)
  Sender: FDA-Public Use
  Company Number: US-PFIZER INC-2012276677

PATIENT
  Age: 61 Year
  Sex: Female
  Weight: 84.81 kg

DRUGS (6)
  1. LYRICA [Suspect]
     Indication: RHEUMATOID ARTHRITIS
     Dosage: 225 mg, 2x/day
     Dates: start: 2009
  2. LYRICA [Suspect]
     Indication: FIBROMYALGIA
     Dosage: UNK 1 bid
     Route: 048
     Dates: start: 20110324, end: 20121031
  3. LASIX [Concomitant]
     Indication: PULMONARY HYPERTENSION
     Dosage: 30 mg, 1x/day
  4. ALDACTONE [Concomitant]
     Indication: PULMONARY HYPERTENSION
     Dosage: 50 mg, daily
  5. WARFARIN SODIUM [Concomitant]
     Indication: THROMBOSIS PULMONARY
     Dosage: 4 mg, daily
  6. COREG [Concomitant]
     Indication: HEARTBEATS IRREGULAR
     Dosage: 6.25 mg, 2x/day

REACTIONS (2)
  - Arthropathy [Unknown]
  - Weight increased [Unknown]
